FAERS Safety Report 12267499 (Version 1)
Quarter: 2016Q2

REPORT INFORMATION
  Report Type: Spontaneous
  Country: None (occurrence: None)
  Receive Date: 20160413
  Receipt Date: 20160413
  Transmission Date: 20160815
  Serious: No
  Sender: FDA-Public Use
  Company Number: None

PATIENT
  Age: 56 Year
  Sex: Female

DRUGS (1)
  1. REBIF [Suspect]
     Active Substance: INTERFERON BETA-1A
     Indication: PRODUCT USED FOR UNKNOWN INDICATION
     Dosage: 44MCG THREE TIMES A SQ
     Route: 058
     Dates: start: 20160310

REACTIONS (4)
  - Multiple sclerosis [None]
  - Diarrhoea [None]
  - Alopecia [None]
  - Constipation [None]

NARRATIVE: CASE EVENT DATE: 20160411
